FAERS Safety Report 17971172 (Version 1)
Quarter: 2020Q3

REPORT INFORMATION
  Report Type: Spontaneous
  Country: US (occurrence: US)
  Receive Date: 20200701
  Receipt Date: 20200701
  Transmission Date: 20201103
  Serious: Yes (Other)
  Sender: FDA-Public Use
  Company Number: US-GILEAD-2020-0477689

PATIENT
  Age: 44 Year
  Sex: Male
  Weight: 90.7 kg

DRUGS (1)
  1. REMDESIVIR. [Suspect]
     Active Substance: REMDESIVIR
     Indication: COVID-19
     Dosage: UNK
     Route: 065
     Dates: start: 20200624, end: 20200628

REACTIONS (1)
  - Alanine aminotransferase increased [Unknown]

NARRATIVE: CASE EVENT DATE: 20200628
